FAERS Safety Report 24265788 (Version 6)
Quarter: 2025Q4

REPORT INFORMATION
  Report Type: Spontaneous
  Country: US (occurrence: US)
  Receive Date: 20240830
  Receipt Date: 20251212
  Transmission Date: 20260118
  Serious: No
  Sender: NOVARTIS
  Company Number: US-002147023-NVSC2024US174770

PATIENT
  Sex: Female

DRUGS (1)
  1. TAFINLAR [Suspect]
     Active Substance: DABRAFENIB MESYLATE
     Indication: Thyroid cancer
     Dosage: 150 MG, BID
     Route: 048
     Dates: start: 202407

REACTIONS (5)
  - Visual impairment [Unknown]
  - Dry skin [Unknown]
  - Diplopia [Unknown]
  - Vision blurred [Unknown]
  - Oral pain [Unknown]
